FAERS Safety Report 9076818 (Version 1)
Quarter: 2013Q1

REPORT INFORMATION
  Report Type: Report from Study
  Country: US (occurrence: US)
  Receive Date: 20130130
  Receipt Date: 20130130
  Transmission Date: 20140127
  Serious: Yes (Other)
  Sender: FDA-Public Use
  Company Number: US-JNJFOC-20130112918

PATIENT
  Age: 57 None
  Sex: Male
  Weight: 158.76 kg

DRUGS (3)
  1. STELARA [Suspect]
     Indication: PSORIASIS
     Route: 058
     Dates: start: 2009
  2. ALEVE [Concomitant]
     Indication: JOINT INJURY
     Route: 048
  3. GLUCOSAMINE [Concomitant]
     Indication: JOINT INJURY
     Route: 048

REACTIONS (6)
  - Hepatitis C [Not Recovered/Not Resolved]
  - Weight decreased [Not Recovered/Not Resolved]
  - Blood count abnormal [Unknown]
  - Weight fluctuation [Not Recovered/Not Resolved]
  - Hypometabolism [Not Recovered/Not Resolved]
  - Drug dose omission [Recovered/Resolved]
